FAERS Safety Report 6386359-7 (Version None)
Quarter: 2009Q4

REPORT INFORMATION
  Report Type: 
  Country: None (occurrence: None)
  Receive Date: 20091002
  Receipt Date: 20090923
  Transmission Date: 20100525
  Serious: Yes (Other)
  Sender: FDA-Public Use
  Company Number: HR-ABBOTT-09P-216-0599092-00

PATIENT
  Sex: Female

DRUGS (5)
  1. GOPTEN [Suspect]
     Indication: ESSENTIAL HYPERTENSION
     Route: 048
     Dates: start: 20080301
  2. ALOPURINOL [Suspect]
     Indication: GOUT
     Route: 048
     Dates: start: 20080301
  3. INDOMETHACIN [Suspect]
     Indication: GOUT
     Route: 048
     Dates: start: 20080301
  4. LACIPIL [Concomitant]
     Indication: DRUG USE FOR UNKNOWN INDICATION
     Route: 048
     Dates: start: 20080301
  5. ORMIDOL [Concomitant]
     Indication: DRUG USE FOR UNKNOWN INDICATION
     Route: 048
     Dates: start: 20080301

REACTIONS (5)
  - COUGH [None]
  - DYSPHAGIA [None]
  - EYELID OEDEMA [None]
  - FATIGUE [None]
  - SOMNOLENCE [None]
